FAERS Safety Report 6439692-4 (Version None)
Quarter: 2009Q4

REPORT INFORMATION
  Report Type: 
  Country: None (occurrence: None)
  Receive Date: 20091113
  Receipt Date: 20091109
  Transmission Date: 20100525
  Serious: Yes (Hospitalization)
  Sender: FDA-Public Use
  Company Number: GXKR2009DE00550

PATIENT
  Age: 45 Year
  Sex: Male
  Weight: 123 kg

DRUGS (6)
  1. FALITHROM (NGX) [Interacting]
     Indication: ATRIAL FIBRILLATION
     Dosage: 3 MG, QD
     Route: 048
     Dates: start: 20030101, end: 20080806
  2. ALLOPURINOL (NGX) [Suspect]
     Indication: HYPERURICAEMIA
     Dosage: 300 MG, QD
     Route: 048
     Dates: start: 20080401
  3. VERAPAMIL [Concomitant]
     Indication: ATRIAL FIBRILLATION
     Dosage: 240 MG, QD
     Route: 048
     Dates: start: 20080401
  4. METFORMIN HCL [Concomitant]
     Indication: TYPE 2 DIABETES MELLITUS
     Dosage: 500 MG, 2 IN DAY
     Route: 048
     Dates: start: 20050101
  5. LISINOPRIL [Concomitant]
     Indication: CARDIOMYOPATHY
     Dosage: 5 MG, QD
     Route: 048
     Dates: start: 20030101
  6. DIGITOXIN INJ [Concomitant]
     Indication: ATRIAL FIBRILLATION
     Dosage: UNK
     Route: 048
     Dates: start: 20030101

REACTIONS (1)
  - DUODENITIS HAEMORRHAGIC [None]
